FAERS Safety Report 5887019-9 (Version None)
Quarter: 2008Q3

REPORT INFORMATION
  Report Type: 
  Country: None (occurrence: None)
  Receive Date: 20080915
  Receipt Date: 20080903
  Transmission Date: 20090109
  Serious: Yes (Hospitalization)
  Sender: FDA-Public Use
  Company Number: 230678J08CAN

PATIENT
  Age: 54 Year
  Sex: Female

DRUGS (8)
  1. REBIF [Suspect]
     Indication: MULTIPLE SCLEROSIS
     Dosage: 44 MCG, 3 IN 1 WEEKS
     Dates: start: 19990101
  2. ROSUVASTATIN [Concomitant]
  3. GLYCERYL TRINITRATE [Concomitant]
  4. PERINDORPIL [Concomitant]
  5. .. [Concomitant]
  6. ACETYLSALICYLIC ACID SRT [Concomitant]
  7. CLOPIDOGREL BISULFATE [Concomitant]
  8. METOPROLOL TARTRATE [Concomitant]

REACTIONS (1)
  - MYOCARDIAL INFARCTION [None]
